FAERS Safety Report 7906203-3 (Version None)
Quarter: 2011Q4

REPORT INFORMATION
  Report Type: 
  Country: None (occurrence: None)
  Receive Date: 20111110
  Receipt Date: 20111028
  Transmission Date: 20120403
  Serious: Yes (Hospitalization)
  Sender: FDA-Public Use
  Company Number: JP-ASTELLAS-2011US007244

PATIENT
  Sex: Female
  Weight: 48 kg

DRUGS (8)
  1. BEVACIZUMAB [Suspect]
     Indication: NON-SMALL CELL LUNG CANCER
     Dosage: 15 MG/KG, Q3W
     Route: 042
     Dates: start: 20111006, end: 20111006
  2. MICARDIS [Concomitant]
     Indication: HYPERTENSION
     Dosage: 40 MG, BID
     Route: 048
     Dates: start: 20111019
  3. CLINDAMYCIN PHOSPHATE [Concomitant]
     Indication: RASH
     Dosage: UNK UNK, UNKNOWN/D
     Route: 061
     Dates: start: 20111019
  4. KARY UNI [Concomitant]
     Indication: CATARACT
     Dosage: 1-2 DROPS, TID
     Route: 047
     Dates: start: 20100401
  5. ERLOTINIB HYDROCHLORIDE [Suspect]
     Indication: NON-SMALL CELL LUNG CANCER
     Dosage: 150 MG, UID/QD
     Route: 048
     Dates: start: 20111006, end: 20111028
  6. AMLODIPINE [Concomitant]
     Indication: HYPERTENSION
     Dosage: 2.5 MG, BID
     Route: 048
     Dates: start: 20111004
  7. LENDORMIN DAINIPPO [Concomitant]
     Indication: INSOMNIA
     Dosage: 0.25 MG, UID/QD
     Route: 048
     Dates: start: 20111008
  8. HYALEIN [Concomitant]
     Indication: GLAUCOMA
     Dosage: 1 DROPS, 5 IN 1 D
     Route: 047
     Dates: start: 20110401

REACTIONS (1)
  - PNEUMOTHORAX [None]
